FAERS Safety Report 18734640 (Version 3)
Quarter: 2021Q1

REPORT INFORMATION
  Report Type: Other
  Country: ES (occurrence: ES)
  Receive Date: 20210113
  Receipt Date: 20210302
  Transmission Date: 20210419
  Serious: Yes (Other)
  Sender: FDA-Public Use
  Company Number: ES-ROCHE-2577648

PATIENT

DRUGS (1)
  1. CAPECITABINE. [Suspect]
     Active Substance: CAPECITABINE
     Indication: BREAST CANCER METASTATIC
     Route: 048

REACTIONS (49)
  - Thrombocytopenia [Unknown]
  - Hyponatraemia [Unknown]
  - Hypertension [Unknown]
  - Blood alkaline phosphatase increased [Unknown]
  - Hyperglycaemia [Unknown]
  - Nail disorder [Unknown]
  - Arthralgia [Unknown]
  - Hypernatraemia [Unknown]
  - Alanine aminotransferase increased [Unknown]
  - Weight increased [Unknown]
  - Abdominal pain [Unknown]
  - Diverticulitis [Unknown]
  - Neutropenia [Unknown]
  - Febrile neutropenia [Unknown]
  - Palmar-plantar erythrodysaesthesia syndrome [Unknown]
  - Diarrhoea [Unknown]
  - Blood creatinine increased [Unknown]
  - Hypercalcaemia [Unknown]
  - Hypermagnesaemia [Unknown]
  - Pruritus [Unknown]
  - Pain in extremity [Unknown]
  - Angina pectoris [Unknown]
  - Embolism [Unknown]
  - Dermatitis bullous [Unknown]
  - Anaemia [Unknown]
  - Leukopenia [Unknown]
  - Hyperkalaemia [Unknown]
  - Blood bilirubin increased [Unknown]
  - Chronic kidney disease [Unknown]
  - Pulmonary embolism [Unknown]
  - Hypocalcaemia [Unknown]
  - Pain [Unknown]
  - Headache [Unknown]
  - Obesity [Unknown]
  - Weight decreased [Unknown]
  - Nausea [Unknown]
  - Fatigue [Unknown]
  - Decreased appetite [Unknown]
  - Pancreatitis [Unknown]
  - Aspartate aminotransferase increased [Unknown]
  - Vomiting [Unknown]
  - Upper respiratory tract infection [Unknown]
  - Mucosal inflammation [Unknown]
  - Bone pain [Unknown]
  - Hypomagnesaemia [Unknown]
  - Hypokalaemia [Unknown]
  - Hypoalbuminaemia [Unknown]
  - Haemoglobin increased [Unknown]
  - Cardiac failure [Unknown]
